FAERS Safety Report 26084251 (Version 1)
Quarter: 2025Q4

REPORT INFORMATION
  Report Type: Spontaneous
  Country: EU (occurrence: EU)
  Receive Date: 20251124
  Receipt Date: 20251124
  Transmission Date: 20260118
  Serious: Yes (Hospitalization)
  Sender: MYLAN
  Company Number: None

PATIENT
  Age: 41 Year
  Sex: Female

DRUGS (16)
  1. CYKLOKAPRON [Suspect]
     Active Substance: TRANEXAMIC ACID
     Indication: Heavy menstrual bleeding
     Dosage: 1500 MILLIGRAM, Q8H (3 X PER DAY 3 PIECES)
     Dates: start: 20240824, end: 20240830
  2. CYKLOKAPRON [Suspect]
     Active Substance: TRANEXAMIC ACID
     Dosage: 1500 MILLIGRAM, Q8H (3 X PER DAY 3 PIECES)
     Route: 048
     Dates: start: 20240824, end: 20240830
  3. CYKLOKAPRON [Suspect]
     Active Substance: TRANEXAMIC ACID
     Dosage: 1500 MILLIGRAM, Q8H (3 X PER DAY 3 PIECES)
     Route: 048
     Dates: start: 20240824, end: 20240830
  4. CYKLOKAPRON [Suspect]
     Active Substance: TRANEXAMIC ACID
     Dosage: 1500 MILLIGRAM, Q8H (3 X PER DAY 3 PIECES)
     Dates: start: 20240824, end: 20240830
  5. NORETHINDRONE [Suspect]
     Active Substance: NORETHINDRONE
     Indication: Heavy menstrual bleeding
     Dosage: 5 MILLIGRAM, Q8H (3 X PER DAY 1 PIECE)
     Dates: start: 20240824
  6. NORETHINDRONE [Suspect]
     Active Substance: NORETHINDRONE
     Dosage: 5 MILLIGRAM, Q8H (3 X PER DAY 1 PIECE)
     Route: 048
     Dates: start: 20240824
  7. NORETHINDRONE [Suspect]
     Active Substance: NORETHINDRONE
     Dosage: 5 MILLIGRAM, Q8H (3 X PER DAY 1 PIECE)
     Route: 048
     Dates: start: 20240824
  8. NORETHINDRONE [Suspect]
     Active Substance: NORETHINDRONE
     Dosage: 5 MILLIGRAM, Q8H (3 X PER DAY 1 PIECE)
     Dates: start: 20240824
  9. TIBOLONE [Suspect]
     Active Substance: TIBOLONE
     Indication: Heavy menstrual bleeding
     Dosage: 2.5 MILLIGRAM, QD (1 X PER DAY 1 PIECE)
     Dates: start: 20240829, end: 20240830
  10. TIBOLONE [Suspect]
     Active Substance: TIBOLONE
     Dosage: 2.5 MILLIGRAM, QD (1 X PER DAY 1 PIECE)
     Route: 048
     Dates: start: 20240829, end: 20240830
  11. TIBOLONE [Suspect]
     Active Substance: TIBOLONE
     Dosage: 2.5 MILLIGRAM, QD (1 X PER DAY 1 PIECE)
     Route: 048
     Dates: start: 20240829, end: 20240830
  12. TIBOLONE [Suspect]
     Active Substance: TIBOLONE
     Dosage: 2.5 MILLIGRAM, QD (1 X PER DAY 1 PIECE)
     Dates: start: 20240829, end: 20240830
  13. AMLODIPINE [Concomitant]
     Active Substance: AMLODIPINE BESYLATE
     Dosage: 5 MILLIGRAM
  14. AMLODIPINE [Concomitant]
     Active Substance: AMLODIPINE BESYLATE
     Dosage: 5 MILLIGRAM
     Route: 048
  15. AMLODIPINE [Concomitant]
     Active Substance: AMLODIPINE BESYLATE
     Dosage: 5 MILLIGRAM
     Route: 048
  16. AMLODIPINE [Concomitant]
     Active Substance: AMLODIPINE BESYLATE
     Dosage: 5 MILLIGRAM

REACTIONS (1)
  - Cerebrovascular accident [Unknown]
